FAERS Safety Report 9678744 (Version 1)
Quarter: 2013Q4

REPORT INFORMATION
  Report Type: Spontaneous
  Country: US (occurrence: US)
  Receive Date: 20131108
  Receipt Date: 20131108
  Transmission Date: 20140711
  Serious: Yes (Hospitalization)
  Sender: FDA-Public Use
  Company Number: US-B.I. PHARMACEUTICALS,INC./RIDGEFIELD-2013-BI-35596BP

PATIENT
  Age: 72 Year
  Sex: Female

DRUGS (3)
  1. PRADAXA [Suspect]
     Indication: ATRIAL FIBRILLATION
  2. DEPAKOTE [Concomitant]
     Indication: CONVULSION
  3. VIMPAT [Concomitant]
     Indication: CONVULSION

REACTIONS (3)
  - Grand mal convulsion [Not Recovered/Not Resolved]
  - Jaw fracture [Not Recovered/Not Resolved]
  - Fall [Recovered/Resolved]
